FAERS Safety Report 13977215 (Version 1)
Quarter: 2017Q3

REPORT INFORMATION
  Report Type: Spontaneous
  Country: US (occurrence: US)
  Receive Date: 20170914
  Receipt Date: 20170914
  Transmission Date: 20171128
  Serious: No
  Sender: FDA-Public Use
  Company Number: US-ASTELLAS-2017US022130

PATIENT
  Age: 53 Year
  Sex: Male

DRUGS (1)
  1. XTANDI [Suspect]
     Active Substance: ENZALUTAMIDE
     Indication: PROSTATE CANCER METASTATIC
     Route: 065
     Dates: start: 20170426

REACTIONS (5)
  - Dizziness [Recovered/Resolved]
  - Product size issue [Unknown]
  - Muscle spasms [Unknown]
  - Dysphagia [Recovered/Resolved]
  - Hyperhidrosis [Recovered/Resolved]
